FAERS Safety Report 7594006-1 (Version None)
Quarter: 2011Q3

REPORT INFORMATION
  Report Type: 
  Country: None (occurrence: None)
  Receive Date: 20110706
  Receipt Date: 20110629
  Transmission Date: 20111222
  Serious: Yes (Hospitalization, Other)
  Sender: FDA-Public Use
  Company Number: JP-PFIZER INC-2010055556

PATIENT
  Sex: Male
  Weight: 3.13 kg

DRUGS (4)
  1. HALCION [Suspect]
     Dosage: UNK
     Route: 064
  2. AMOXAPINE [Suspect]
     Indication: DEPRESSION
     Dosage: UNK
     Route: 064
  3. DEPAS [Suspect]
     Dosage: UNK
     Route: 064
  4. ALPRAZOLAM [Suspect]
     Dosage: UNK
     Route: 064

REACTIONS (4)
  - NEONATAL RESPIRATORY DISTRESS SYNDROME [None]
  - MATERNAL EXPOSURE DURING PREGNANCY [None]
  - DRUG WITHDRAWAL SYNDROME NEONATAL [None]
  - PREMATURE BABY [None]
